FAERS Safety Report 22364831 (Version 1)
Quarter: 2023Q2

REPORT INFORMATION
  Report Type: Spontaneous
  Country: CA (occurrence: CA)
  Receive Date: 20230525
  Receipt Date: 20230525
  Transmission Date: 20230721
  Serious: Yes (Other)
  Sender: FDA-Public Use
  Company Number: CA-ORGANON-O2305CAN002214

PATIENT
  Age: 28 Year
  Sex: Female
  Weight: 52 kg

DRUGS (6)
  1. DIPROSONE [Suspect]
     Active Substance: BETAMETHASONE DIPROPIONATE
     Dosage: 12 MILLIGRAM, ONCE; DOSAGE FORM: NOT SPECIFIED
     Route: 030
  2. FENTANYL [Concomitant]
     Active Substance: FENTANYL
     Dosage: UNK, DOSAGE FORM: NOT SPECIFIED
     Route: 065
  3. MAGNESIUM SULFATE [Concomitant]
     Active Substance: MAGNESIUM SULFATE
     Dosage: UNK, DOSAGE FORM: LIQUID INTRAMUSCULAR
     Route: 065
  4. NIFEDIPINE [Concomitant]
     Active Substance: NIFEDIPINE
     Dosage: UNK, DOSAGE FORM:NOT SPECIFIED
     Route: 065
  5. PROGESTERONE [Concomitant]
     Active Substance: PROGESTERONE
     Dosage: UNK, DOSAGE FORM:NOT SPECIFIED
     Route: 065
  6. VITAMINS [Concomitant]
     Active Substance: VITAMINS
     Dosage: UNK, DOSAGE FORM: NOT SPECIFIED
     Route: 065

REACTIONS (4)
  - Rash [Recovered/Resolved]
  - Flushing [Recovered/Resolved]
  - Skin reaction [Recovered/Resolved]
  - Paraesthesia [Recovered/Resolved]
